FAERS Safety Report 7962920-0 (Version None)
Quarter: 2011Q4

REPORT INFORMATION
  Report Type: 
  Country: None (occurrence: None)
  Receive Date: 20111207
  Receipt Date: 20111128
  Transmission Date: 20120403
  Serious: Yes (Hospitalization, Other)
  Sender: FDA-Public Use
  Company Number: US-ASTRAZENECA-2009SE23894

PATIENT
  Age: 65 Year
  Sex: Female
  Weight: 72.6 kg

DRUGS (11)
  1. SEROQUEL [Suspect]
     Route: 048
     Dates: start: 20060101, end: 20100325
  2. SEROQUEL [Suspect]
     Route: 048
     Dates: start: 20060101, end: 20100325
  3. VENTOLIN [Concomitant]
  4. ATROVENT [Concomitant]
     Indication: CARDIAC FAILURE CONGESTIVE
  5. SEROQUEL [Suspect]
     Indication: BIPOLAR DISORDER
     Route: 048
     Dates: start: 20060101, end: 20100325
  6. SEROQUEL [Suspect]
     Indication: SLEEP TERROR
     Route: 048
     Dates: start: 20060101, end: 20100325
  7. CLONAZEPAM [Concomitant]
  8. SEROQUEL [Suspect]
     Route: 048
     Dates: start: 20100401
  9. PROAIR HFA [Concomitant]
     Indication: CARDIAC FAILURE CONGESTIVE
  10. SEROQUEL [Suspect]
     Route: 048
     Dates: start: 20100401
  11. FLOVENT [Concomitant]
     Indication: CARDIAC FAILURE CONGESTIVE

REACTIONS (11)
  - ANKLE FRACTURE [None]
  - LARYNGITIS [None]
  - LIMB INJURY [None]
  - NECK INJURY [None]
  - CARDIAC FAILURE CONGESTIVE [None]
  - FOOT FRACTURE [None]
  - BUNION [None]
  - DRUG DOSE OMISSION [None]
  - PNEUMONIA BACTERIAL [None]
  - JOINT INJURY [None]
  - INSOMNIA [None]
